FAERS Safety Report 7178340-5 (Version None)
Quarter: 2010Q4

REPORT INFORMATION
  Report Type: 
  Country: None (occurrence: None)
  Receive Date: 20101220
  Receipt Date: 20101213
  Transmission Date: 20110411
  Serious: Yes (Hospitalization)
  Sender: FDA-Public Use
  Company Number: BR-ABBOTT-10P-020-0691233-00

PATIENT
  Sex: Male
  Weight: 97 kg

DRUGS (5)
  1. HUMIRA [Suspect]
     Indication: RHEUMATOID ARTHRITIS
     Route: 058
     Dates: start: 20101101
  2. ENALAPRIL [Concomitant]
     Indication: HYPERTENSION
     Route: 048
     Dates: start: 20100801
  3. AMITRIPTYLINE [Concomitant]
     Indication: ANXIETY
     Route: 048
     Dates: start: 20100801
  4. METHOTREXATE [Concomitant]
     Indication: PRODUCT USED FOR UNKNOWN INDICATION
  5. ANTI-INFLAMMATORY DRUGS [Concomitant]
     Indication: PRODUCT USED FOR UNKNOWN INDICATION

REACTIONS (4)
  - ARTHRALGIA [None]
  - BACK PAIN [None]
  - PAIN [None]
  - PANCREATITIS [None]
